FAERS Safety Report 13009825 (Version 2)
Quarter: 2017Q1

REPORT INFORMATION
  Report Type: Spontaneous
  Country: BE (occurrence: BE)
  Receive Date: 20161208
  Receipt Date: 20170313
  Transmission Date: 20170428
  Serious: No
  Sender: FDA-Public Use
  Company Number: BE-TAKEDA-2016TEU006049

PATIENT
  Age: 41 Year
  Sex: Male
  Weight: 97 kg

DRUGS (5)
  1. PANTOMED                           /01263204/ [Concomitant]
     Active Substance: PANTOPRAZOLE SODIUM
     Dosage: UNK
     Route: 048
     Dates: start: 20160520
  2. VIPIDIA [Suspect]
     Active Substance: ALOGLIPTIN BENZOATE
     Dosage: UNK
     Route: 065
  3. VIPIDIA [Suspect]
     Active Substance: ALOGLIPTIN BENZOATE
     Indication: DIABETES MELLITUS
     Dosage: UNK
     Route: 065
     Dates: start: 201606, end: 20160930
  4. UNI DIAMICRON [Concomitant]
     Active Substance: GLICLAZIDE
     Dosage: 60 MG, UNK
     Route: 048
     Dates: start: 201512
  5. GLUCOPHAGE [Concomitant]
     Active Substance: METFORMIN HYDROCHLORIDE
     Dosage: 850 MG, BID
     Route: 048
     Dates: start: 20150105

REACTIONS (3)
  - Aspartate aminotransferase increased [Recovered/Resolved]
  - Gamma-glutamyltransferase increased [Recovered/Resolved]
  - Alanine aminotransferase increased [Recovered/Resolved]

NARRATIVE: CASE EVENT DATE: 20160930
